FAERS Safety Report 8798511 (Version 1)
Quarter: 2012Q4

REPORT INFORMATION
  Report Type: Spontaneous
  Country: US (occurrence: None)
  Receive Date: 20120917
  Receipt Date: 20120917
  Transmission Date: 20130627
  Serious: Yes (Other)
  Sender: FDA-Public Use
  Company Number: None

PATIENT
  Age: 82 Year
  Sex: Female
  Weight: 44.91 kg

DRUGS (3)
  1. NAMENDA [Suspect]
     Indication: DEMENTIA
     Dosage: 5 mg 1 to 2 x per day po
     Route: 048
     Dates: start: 20120803, end: 20130903
  2. NAMENDA [Suspect]
     Indication: DEMENTIA
  3. NAMENDA [Suspect]
     Dosage: 10 mg 1 to 2 x per day po
     Route: 048
     Dates: start: 20120904, end: 20120912

REACTIONS (11)
  - Hallucination [None]
  - Aggression [None]
  - Insomnia [None]
  - Paranoia [None]
  - Delusion [None]
  - Stress [None]
  - Anger [None]
  - Personality change [None]
  - Psychotic behaviour [None]
  - Drug intolerance [None]
  - Homicidal ideation [None]
